FAERS Safety Report 8233364-1 (Version None)
Quarter: 2012Q1

REPORT INFORMATION
  Report Type: 
  Country: None (occurrence: None)
  Receive Date: 20120326
  Receipt Date: 20120320
  Transmission Date: 20120608
  Serious: Yes (Other)
  Sender: FDA-Public Use
  Company Number: DE-AMGEN-DEUSP2012017984

PATIENT
  Age: 37 Year
  Sex: Male

DRUGS (4)
  1. ETOPOSIDE [Concomitant]
     Indication: GERM CELL CANCER METASTATIC
  2. IFOSFAMIDE [Concomitant]
     Indication: GERM CELL CANCER METASTATIC
  3. CISPLATIN [Concomitant]
     Indication: GERM CELL CANCER METASTATIC
  4. NEULASTA [Suspect]
     Indication: PROPHYLAXIS
     Dosage: 6 MG, UNK

REACTIONS (1)
  - LEUKAEMOID REACTION [None]
